FAERS Safety Report 6870596-9 (Version None)
Quarter: 2010Q3

REPORT INFORMATION
  Report Type: 
  Country: None (occurrence: None)
  Receive Date: 20100723
  Receipt Date: 20100712
  Transmission Date: 20110219
  Serious: Yes (Other)
  Sender: FDA-Public Use
  Company Number: PHHY2010CA34909

PATIENT
  Sex: Female

DRUGS (8)
  1. ACLASTA [Suspect]
     Indication: OSTEOPOROSIS
     Dosage: UNK
     Route: 042
     Dates: start: 20090408
  2. AZATHIOPRINE [Concomitant]
     Dosage: 50 MG, BID
  3. COLCHICINE [Concomitant]
     Dosage: 0.6 MG, BID
  4. LYRICA [Concomitant]
     Dosage: 150 MG, BID
  5. ELAVIL [Concomitant]
  6. VITAMIN D [Concomitant]
  7. PREDNISONE [Concomitant]
     Dosage: 10-15 MG
  8. NEXIUM [Concomitant]
     Dosage: 40 MG, QD

REACTIONS (2)
  - HEPATITIS C [None]
  - VASCULITIS [None]
